FAERS Safety Report 21068373 (Version 4)
Quarter: 2022Q4

REPORT INFORMATION
  Report Type: Spontaneous
  Country: DE (occurrence: DE)
  Receive Date: 20220712
  Receipt Date: 20221005
  Transmission Date: 20230112
  Serious: Yes (Death, Hospitalization)
  Sender: FDA-Public Use
  Company Number: DE-BAYER-2022A093624

PATIENT
  Age: 75 Year
  Sex: Female
  Weight: 82 kg

DRUGS (10)
  1. GADOBUTROL [Suspect]
     Active Substance: GADOBUTROL
     Indication: Magnetic resonance imaging head
     Dosage: 8 ML, ONCE
     Route: 042
     Dates: start: 20220705, end: 20220705
  2. GADOBUTROL [Suspect]
     Active Substance: GADOBUTROL
     Indication: Glioblastoma multiforme
  3. BISOPROLOL FUMARATE [Concomitant]
     Active Substance: BISOPROLOL FUMARATE
  4. ENALAPRIL [Concomitant]
     Active Substance: ENALAPRIL
  5. NAPROXEN [Concomitant]
     Active Substance: NAPROXEN
  6. ENACANPIN [Concomitant]
  7. CINNARIZINE [Concomitant]
     Active Substance: CINNARIZINE
  8. ENALAPRIL MALEATE\LERCANIDIPINE HYDROCHLORIDE [Concomitant]
     Active Substance: ENALAPRIL MALEATE\LERCANIDIPINE HYDROCHLORIDE
  9. DECODERM TRI [DEXTROMETHORPHAN HYDROBROMIDE;GUAIFENESIN;PHENYLPROP [Concomitant]
  10. DEXAMETHASONE SODIUM PHOSPHATE [Concomitant]
     Active Substance: DEXAMETHASONE SODIUM PHOSPHATE

REACTIONS (5)
  - Anaphylactic shock [Fatal]
  - Nausea [Fatal]
  - Syncope [Fatal]
  - Pulse absent [Fatal]
  - Respiratory arrest [Fatal]

NARRATIVE: CASE EVENT DATE: 20220705
